FAERS Safety Report 26046515 (Version 2)
Quarter: 2025Q4

REPORT INFORMATION
  Report Type: Spontaneous
  Country: US (occurrence: US)
  Receive Date: 20251114
  Receipt Date: 20251129
  Transmission Date: 20260118
  Serious: No
  Sender: LUPIN
  Company Number: US-LUPIN PHARMACEUTICALS INC.-2025-10245

PATIENT

DRUGS (2)
  1. TOLVAPTAN [Suspect]
     Active Substance: TOLVAPTAN
     Indication: Congenital cystic kidney disease
     Dosage: 1 DOSAGE FORM, QD (MORNING)
  2. TOLVAPTAN [Suspect]
     Active Substance: TOLVAPTAN
     Indication: Congenital cystic kidney disease
     Dosage: 1 DOSAGE FORM, QD, TAKE ONE 45 MG TABLET BY MOUTH EVERY MORNING AND TAKE ONE 15 MG TABLET BY MOUTH 8 HOURS LATER EVERY DAY

REACTIONS (4)
  - Fatigue [Unknown]
  - Asthenia [Unknown]
  - Pollakiuria [Unknown]
  - Product dose omission issue [Unknown]
